FAERS Safety Report 7965887-4 (Version None)
Quarter: 2011Q4

REPORT INFORMATION
  Report Type: 
  Country: None (occurrence: None)
  Receive Date: 20111208
  Receipt Date: 20111202
  Transmission Date: 20120403
  Serious: Yes (Other)
  Sender: FDA-Public Use
  Company Number: US-GLAXOSMITHKLINE-A0956964A

PATIENT
  Age: 67 Year
  Sex: Female

DRUGS (3)
  1. PROCARDIA XL [Suspect]
     Indication: HYPERTENSION
  2. DYAZIDE [Suspect]
     Indication: HYPERTENSION
  3. NORVASC [Suspect]
     Indication: PRODUCT USED FOR UNKNOWN INDICATION

REACTIONS (10)
  - RASH [None]
  - PALPITATIONS [None]
  - FLUSHING [None]
  - TREMOR [None]
  - URTICARIA [None]
  - LIP SWELLING [None]
  - ANAPHYLACTIC REACTION [None]
  - SWOLLEN TONGUE [None]
  - DIARRHOEA [None]
  - COUGH [None]
